FAERS Safety Report 12940559 (Version 1)
Quarter: 2016Q4

REPORT INFORMATION
  Report Type: Report from Study
  Country: US (occurrence: US)
  Receive Date: 20161114
  Receipt Date: 20161114
  Transmission Date: 20170207
  Serious: Yes (Death, Hospitalization, Other)
  Sender: FDA-Public Use
  Company Number: US-ACTELION-A-US2013-83018

PATIENT
  Age: 65 Year
  Sex: Female

DRUGS (4)
  1. VENTAVIS [Suspect]
     Active Substance: ILOPROST
     Dosage: 2.5 MCG,
     Route: 055
     Dates: end: 20161102
  2. VENTAVIS [Suspect]
     Active Substance: ILOPROST
     Indication: PULMONARY ARTERIAL HYPERTENSION
     Dosage: 5 MCG, 6-9X/DAY
     Route: 055
     Dates: start: 20120809
  3. VENTAVIS [Suspect]
     Active Substance: ILOPROST
     Dosage: 2.5 MCG, 6-9X/DAY
     Route: 055
  4. ADCIRCA [Concomitant]
     Active Substance: TADALAFIL

REACTIONS (9)
  - Pulmonary arterial hypertension [Fatal]
  - Chronic obstructive pulmonary disease [Fatal]
  - Cardiac failure congestive [Unknown]
  - Fluid retention [Unknown]
  - Cardiac failure [Unknown]
  - Respiratory tract inflammation [Unknown]
  - Rhinorrhoea [Unknown]
  - Aortic rupture [Fatal]
  - Fluid overload [Unknown]
